FAERS Safety Report 16336627 (Version 1)
Quarter: 2019Q2

REPORT INFORMATION
  Report Type: Other
  Country: NL (occurrence: NL)
  Receive Date: 20190521
  Receipt Date: 20190521
  Transmission Date: 20190711
  Serious: Yes (Hospitalization)
  Sender: FDA-Public Use
  Company Number: NL-GLENMARK PHARMACEUTICALS-2019GMK041279

PATIENT

DRUGS (2)
  1. ATOVAQUONE/PROGUANIL HYDROCHLORIDE [Suspect]
     Active Substance: ATOVAQUONE\PROGUANIL HYDROCHLORIDE
     Indication: MALARIA PROPHYLAXIS
     Dosage: 1 DF, UNK
     Route: 065
     Dates: start: 20190426, end: 20190426
  2. ATRIMOVE [Concomitant]
     Indication: PRODUCT USED FOR UNKNOWN INDICATION
     Dosage: 1 DF, UNK (1 MAATLEPEL)
     Route: 065

REACTIONS (7)
  - Anaphylactic reaction [Recovered/Resolved]
  - Pharyngeal swelling [Recovered/Resolved]
  - Dysphonia [Recovered/Resolved]
  - Wheezing [Recovered/Resolved]
  - Paraesthesia [Recovered/Resolved]
  - Swelling of eyelid [Recovered/Resolved]
  - Cough [Recovered/Resolved]

NARRATIVE: CASE EVENT DATE: 20190426
